FAERS Safety Report 6382436-5 (Version None)
Quarter: 2009Q3

REPORT INFORMATION
  Report Type: 
  Country: None (occurrence: None)
  Receive Date: 20090928
  Receipt Date: 20090928
  Transmission Date: 20100115
  Serious: Yes (Other)
  Sender: FDA-Public Use
  Company Number: None

PATIENT
  Age: 64 Year
  Sex: Male
  Weight: 79.3795 kg

DRUGS (1)
  1. FENTANYL TRANSDERMAL SYSTEM [Suspect]
     Indication: PAIN
     Dosage: APPLY 1 PATCH EVERY 48 HOURS
     Dates: start: 20090821

REACTIONS (2)
  - DEVICE ADHESION ISSUE [None]
  - INCORRECT DOSE ADMINISTERED [None]
